FAERS Safety Report 15459026 (Version 11)
Quarter: 2019Q4

REPORT INFORMATION
  Report Type: Report from Study
  Country: CO (occurrence: CO)
  Receive Date: 20181003
  Receipt Date: 20191023
  Transmission Date: 20200122
  Serious: Yes (Other)
  Sender: FDA-Public Use
  Company Number: PHHY2018CO098698

PATIENT
  Age: 65 Year
  Sex: Male
  Weight: 70 kg

DRUGS (11)
  1. METOPROLOL. [Concomitant]
     Active Substance: METOPROLOL
     Indication: HYPERTENSION
     Dosage: 50 MG, QD
     Route: 048
  2. METFORMINA WINTHROP [Concomitant]
     Indication: PRODUCT USED FOR UNKNOWN INDICATION
     Dosage: 850 MG, QD (AT LUNCH)
     Route: 065
  3. LEVOTHYROXINE. [Concomitant]
     Active Substance: LEVOTHYROXINE
     Indication: PRODUCT USED FOR UNKNOWN INDICATION
     Dosage: 70 UG, QD
     Route: 048
  4. TASIGNA [Suspect]
     Active Substance: NILOTINIB
     Dosage: 800 MG, QD
     Route: 048
  5. TASIGNA [Suspect]
     Active Substance: NILOTINIB
     Dosage: 800 MG, QD
     Route: 048
  6. TASIGNA [Suspect]
     Active Substance: NILOTINIB
     Dosage: 200 MG, UNK
     Route: 048
  7. PREDNISOLONE. [Concomitant]
     Active Substance: PREDNISOLONE
     Indication: HYPOPHYSITIS
     Dosage: 5 MG, UNK
     Route: 065
  8. PREDNISOLONE. [Concomitant]
     Active Substance: PREDNISOLONE
     Dosage: 10 MG, QD
     Route: 048
  9. TASIGNA [Suspect]
     Active Substance: NILOTINIB
     Indication: CHRONIC MYELOID LEUKAEMIA
     Dosage: 150 MG, UNK
     Route: 048
     Dates: start: 20080605
  10. TASIGNA [Suspect]
     Active Substance: NILOTINIB
     Dosage: 400 MG, Q12H
     Route: 048
  11. ATORVASTATIN [Suspect]
     Active Substance: ATORVASTATIN
     Indication: BLOOD CHOLESTEROL INCREASED
     Dosage: 800 MG, QD
     Route: 048

REACTIONS (25)
  - Ligament sprain [Unknown]
  - Fibula fracture [Unknown]
  - White blood cell count increased [Unknown]
  - Foot fracture [Unknown]
  - Movement disorder [Unknown]
  - Blood pressure increased [Unknown]
  - Organ failure [Recovered/Resolved]
  - Malignant neoplasm progression [Unknown]
  - Weight decreased [Unknown]
  - Malaise [Unknown]
  - Eschar [Recovered/Resolved]
  - Dizziness [Unknown]
  - General physical condition abnormal [Unknown]
  - Back pain [Recovering/Resolving]
  - Pain [Unknown]
  - Inflammation [Unknown]
  - Pyrexia [Recovered/Resolved]
  - Diabetes mellitus [Unknown]
  - Scoliosis [Unknown]
  - Gait disturbance [Unknown]
  - Depressed mood [Recovered/Resolved]
  - Inappropriate schedule of product administration [Unknown]
  - Tibia fracture [Unknown]
  - Chronic myeloid leukaemia [Unknown]
  - Spinal pain [Recovering/Resolving]

NARRATIVE: CASE EVENT DATE: 201902
